FAERS Safety Report 6571130-3 (Version None)
Quarter: 2010Q1

REPORT INFORMATION
  Report Type: 
  Country: None (occurrence: None)
  Receive Date: 20100204
  Receipt Date: 20100127
  Transmission Date: 20100710
  Serious: Yes (Hospitalization, Other)
  Sender: FDA-Public Use
  Company Number: US-ELI_LILLY_AND_COMPANY-US200911006224

PATIENT
  Sex: Female

DRUGS (4)
  1. HUMALOG MIX 75/25 [Suspect]
     Dosage: UNK, UNK
     Dates: start: 20080101
  2. HUMALOG MIX 75/25 [Suspect]
     Dosage: UNK, UNK
     Dates: end: 20080101
  3. GLIPIZIDE [Concomitant]
  4. AMARYL [Concomitant]

REACTIONS (4)
  - CORONARY ARTERY DISEASE [None]
  - DEEP VEIN THROMBOSIS [None]
  - OBESITY [None]
  - RENAL FAILURE [None]
